FAERS Safety Report 7564634-8 (Version None)
Quarter: 2011Q2

REPORT INFORMATION
  Report Type: 
  Country: None (occurrence: None)
  Receive Date: 20110622
  Receipt Date: 20100831
  Transmission Date: 20111010
  Serious: Yes (Other)
  Sender: FDA-Public Use
  Company Number: US-MYLANLABS-2010S1013181

PATIENT
  Age: 46 Year
  Sex: Male
  Weight: 87.54 kg

DRUGS (18)
  1. TAMSULOSIN HCL [Concomitant]
  2. NEXIUM [Concomitant]
  3. SERTRALINE HYDROCHLORIDE [Concomitant]
  4. METOCLOPRAMIDE [Concomitant]
  5. SUCRALFATE [Concomitant]
  6. BENZTROPINE MESYLATE [Concomitant]
  7. DESMOPRESSIN [Concomitant]
  8. CARBIDOPA AND LEVODOPA [Concomitant]
  9. MULTIVITAMINES WITH IRON /02170101/ [Concomitant]
  10. TRILIPIX [Concomitant]
  11. CLOZAPINE [Suspect]
     Dates: start: 20100723
  12. DIVALPROEX SODIUM [Concomitant]
  13. FERROUS SULFATE TAB [Concomitant]
  14. ZYPREXA [Concomitant]
  15. AMLODIPINE [Concomitant]
  16. POLYETHYLENE GLYCOL [Concomitant]
  17. CARBAMAZEPINE [Concomitant]
  18. CLOZAPINE [Suspect]
     Indication: BIPOLAR DISORDER
     Dates: start: 20070601, end: 20100721

REACTIONS (2)
  - GRANULOCYTOPENIA [None]
  - LEUKOPENIA [None]
